FAERS Safety Report 7954840-2 (Version None)
Quarter: 2011Q4

REPORT INFORMATION
  Report Type: 
  Country: None (occurrence: None)
  Receive Date: 20111202
  Receipt Date: 20111128
  Transmission Date: 20120403
  Serious: Yes (Hospitalization)
  Sender: FDA-Public Use
  Company Number: US-ACTELION-A-US2011-57236

PATIENT

DRUGS (5)
  1. TRACLEER [Suspect]
     Dosage: 62.5 MG, BID
     Route: 048
     Dates: start: 20110201, end: 20110314
  2. TRACLEER [Suspect]
     Indication: PULMONARY ARTERIAL HYPERTENSION
     Dosage: 125 MG, BID
     Route: 048
     Dates: start: 20110315, end: 20111108
  3. EPOPROSTENOL SODIUM [Concomitant]
     Indication: PULMONARY ARTERIAL HYPERTENSION
     Route: 042
  4. REVATIO [Concomitant]
  5. COUMADIN [Concomitant]

REACTIONS (6)
  - BLOOD BILIRUBIN INCREASED [None]
  - PERICARDIAL EFFUSION [None]
  - LIVER FUNCTION TEST ABNORMAL [None]
  - ALANINE AMINOTRANSFERASE INCREASED [None]
  - ASPARTATE AMINOTRANSFERASE INCREASED [None]
  - BLOOD ALKALINE PHOSPHATASE INCREASED [None]
